FAERS Safety Report 5204807-2 (Version None)
Quarter: 2007Q1

REPORT INFORMATION
  Report Type: 
  Country: None (occurrence: None)
  Receive Date: 20070110
  Receipt Date: 20060725
  Transmission Date: 20070707
  Serious: No
  Sender: FDA-Public Use
  Company Number: US-BRISTOL-MYERS SQUIBB COMPANY-13452487

PATIENT
  Age: 73 Year
  Sex: Female
  Weight: 73 kg

DRUGS (3)
  1. ABILIFY [Suspect]
     Route: 048
     Dates: start: 20060724
  2. HYPERTENSION MEDICATION [Concomitant]
     Indication: HYPERTENSION
  3. XANAX [Concomitant]
     Dates: start: 20060722

REACTIONS (1)
  - AGITATION [None]
